FAERS Safety Report 5461045-6 (Version None)
Quarter: 2007Q3

REPORT INFORMATION
  Report Type: 
  Country: None (occurrence: None)
  Receive Date: 20070820
  Receipt Date: 20061114
  Transmission Date: 20080115
  Serious: Yes (Other)
  Sender: FDA-Public Use
  Company Number: 2006141105

PATIENT
  Age: 2 Month

DRUGS (1)
  1. ROGAINE [Suspect]
     Dosage: UNSPECIFIED AMOUNT, ONCE, ORAL
     Route: 048
     Dates: start: 20061114, end: 20061114

REACTIONS (1)
  - ACCIDENTAL EXPOSURE [None]
